FAERS Safety Report 15696595 (Version 1)
Quarter: 2018Q4

REPORT INFORMATION
  Report Type: Spontaneous
  Country: US (occurrence: US)
  Receive Date: 20181206
  Receipt Date: 20181206
  Transmission Date: 20190205
  Serious: Yes (Other)
  Sender: FDA-Public Use
  Company Number: US-SUPERNUS PHARMACEUTICALS, INC.-2018SUP00046

PATIENT
  Sex: Male
  Weight: 34.01 kg

DRUGS (7)
  1. OXTELLAR XR [Suspect]
     Active Substance: OXCARBAZEPINE
     Indication: BENIGN ROLANDIC EPILEPSY
     Dosage: 600 MG, 1X/DAY (TOTAL DOSE 750 MG)
     Route: 048
     Dates: end: 2017
  2. OXTELLAR XR [Suspect]
     Active Substance: OXCARBAZEPINE
     Indication: BENIGN ROLANDIC EPILEPSY
     Dosage: 300 MG, 1X/DAY (TOTAL DOSE 300 MG AND 450 MG)
     Route: 048
     Dates: start: 2016
  3. OXTELLAR XR [Suspect]
     Active Substance: OXCARBAZEPINE
     Dosage: 600 MG, 1X/DAY (TOTAL DOSE 900 MG)
     Route: 048
     Dates: start: 201712
  4. OXTELLAR XR [Suspect]
     Active Substance: OXCARBAZEPINE
     Indication: BENIGN ROLANDIC EPILEPSY
     Dosage: 150 MG, 1X/DAY (TOTAL DOSE 150 MG)
     Route: 048
     Dates: start: 201610, end: 2016
  5. OXTELLAR XR [Suspect]
     Active Substance: OXCARBAZEPINE
     Dosage: 300 MG, 1X/DAY (TOTAL DOSE 900 MG)
     Route: 048
     Dates: start: 201712
  6. OXTELLAR XR [Suspect]
     Active Substance: OXCARBAZEPINE
     Dosage: 150 MG, 1X/DAY (TOTAL DOSE 450 MG)
     Route: 048
  7. OXTELLAR XR [Suspect]
     Active Substance: OXCARBAZEPINE
     Dosage: 150 MG, 1X/DAY (TOTAL DOSE 750 MG)
     Route: 048
     Dates: end: 2017

REACTIONS (2)
  - Seizure [Unknown]
  - Drug ineffective [Not Recovered/Not Resolved]
